FAERS Safety Report 4525622-9 (Version None)
Quarter: 2004Q4

REPORT INFORMATION
  Report Type: 
  Country: None (occurrence: None)
  Receive Date: 20041116
  Receipt Date: 20041011
  Transmission Date: 20050328
  Serious: No
  Sender: FDA-Public Use
  Company Number: S04-USA-06675-01

PATIENT
  Age: 87 Year
  Sex: Female

DRUGS (7)
  1. NAMENDA [Suspect]
     Indication: MEMORY IMPAIRMENT
     Dosage: 10 MG BID PO
     Route: 048
     Dates: start: 20040101
  2. NAMENDA [Suspect]
     Indication: MEMORY IMPAIRMENT
     Dosage: 5 MG QD PO
     Route: 048
     Dates: start: 20040601, end: 20040101
  3. NAMENDA [Suspect]
     Indication: MEMORY IMPAIRMENT
     Dosage: 10 MG QD PO
     Route: 048
     Dates: start: 20040101, end: 20040101
  4. NAMENDA [Suspect]
     Indication: MEMORY IMPAIRMENT
     Dosage: 15 MG QD PO
     Route: 048
     Dates: start: 20040101, end: 20040101
  5. ATENOLOL [Concomitant]
  6. ARICEPT [Concomitant]
  7. THYROID TAB [Concomitant]

REACTIONS (1)
  - BLOOD CALCIUM INCREASED [None]
